FAERS Safety Report 25123727 (Version 4)
Quarter: 2025Q2

REPORT INFORMATION
  Report Type: Spontaneous
  Country: ES (occurrence: ES)
  Receive Date: 20250326
  Receipt Date: 20250429
  Transmission Date: 20250716
  Serious: Yes (Hospitalization, Congenital Anomaly, Other)
  Sender: AUROBINDO
  Company Number: ES-Desitin-2025-00520

PATIENT
  Sex: Female
  Weight: 2.86 kg

DRUGS (14)
  1. LEVETIRACETAM [Suspect]
     Active Substance: LEVETIRACETAM
     Indication: Epilepsy
     Dosage: 2500 MILLIGRAM, ONCE A DAY
     Route: 064
  2. LEVETIRACETAM [Suspect]
     Active Substance: LEVETIRACETAM
     Dosage: 2500 MILLIGRAM, ONCE A DAY
     Route: 048
     Dates: start: 2018
  3. LAMOTRIGINE [Suspect]
     Active Substance: LAMOTRIGINE
     Indication: Epilepsy
     Dosage: 500 MILLIGRAM, ONCE A DAY
     Route: 064
  4. LAMOTRIGINE [Suspect]
     Active Substance: LAMOTRIGINE
     Dosage: 500 MILLIGRAM, ONCE A DAY
     Route: 048
     Dates: start: 2018
  5. FOLIC ACID\POTASSIUM IODIDE [Suspect]
     Active Substance: FOLIC ACID\POTASSIUM IODIDE
     Indication: Pregnancy
     Route: 064
  6. FOLIC ACID\POTASSIUM IODIDE [Suspect]
     Active Substance: FOLIC ACID\POTASSIUM IODIDE
     Dosage: 400 MILLIGRAM, ONCE A DAY
     Route: 064
     Dates: start: 2018
  7. LEVOTHYROXINE SODIUM [Suspect]
     Active Substance: LEVOTHYROXINE SODIUM
     Indication: Hypothyroidism
     Dosage: 25 MICROGRAM, ONCE A DAY
     Route: 064
     Dates: start: 2018
  8. CLOBAZAM [Suspect]
     Active Substance: CLOBAZAM
     Indication: Epilepsy
     Dosage: 10 MILLIGRAM, ONCE A DAY
     Route: 064
  9. CLOBAZAM [Suspect]
     Active Substance: CLOBAZAM
     Dosage: 10 MILLIGRAM, ONCE A DAY
     Route: 048
     Dates: start: 2018
  10. LEVOTHYROXINE [Concomitant]
     Active Substance: LEVOTHYROXINE
     Indication: Hypothyroidism
     Dosage: 25 MICROGRAM, ONCE A DAY
     Route: 064
  11. LEVOTHYROXINE [Concomitant]
     Active Substance: LEVOTHYROXINE
     Dosage: 25 MICROGRAM, ONCE A DAY
     Route: 048
     Dates: start: 2018
  12. FOLIC ACID [Concomitant]
     Active Substance: FOLIC ACID
     Indication: Pregnancy
     Dosage: 400 MICROGRAM, ONCE A DAY
     Route: 064
  13. FOLIC ACID [Concomitant]
     Active Substance: FOLIC ACID
     Route: 064
  14. FOLIC ACID [Concomitant]
     Active Substance: FOLIC ACID
     Dosage: 400 MICROGRAM, ONCE A DAY
     Route: 048
     Dates: start: 2018

REACTIONS (3)
  - Anorectal malformation [Recovered/Resolved with Sequelae]
  - Foetal exposure during pregnancy [Recovered/Resolved with Sequelae]
  - Maternal exposure during pregnancy [Recovered/Resolved with Sequelae]

NARRATIVE: CASE EVENT DATE: 20180101
